FAERS Safety Report 21187860 (Version 1)
Quarter: 2022Q3

REPORT INFORMATION
  Report Type: Spontaneous
  Country: TH (occurrence: TH)
  Receive Date: 20220809
  Receipt Date: 20220809
  Transmission Date: 20221026
  Serious: Yes (Death, Hospitalization)
  Sender: FDA-Public Use
  Company Number: TH-STRIDES ARCOLAB LIMITED-2022SP009953

PATIENT
  Age: 43 Year
  Sex: Female

DRUGS (13)
  1. PREDNISOLONE [Suspect]
     Active Substance: PREDNISOLONE
     Indication: Atypical mycobacterial infection
     Dosage: 1 MILLIGRAM/KILOGRAM PER DAY
     Route: 065
  2. DEXAMETHASONE [Suspect]
     Active Substance: DEXAMETHASONE
     Indication: Natural killer-cell lymphoblastic lymphoma
     Dosage: UNK UNK, CYCLICAL  (SMILE REGIMEN)
     Route: 065
  3. ETOPOSIDE [Suspect]
     Active Substance: ETOPOSIDE
     Indication: Natural killer-cell lymphoblastic lymphoma
     Dosage: UNK UNK, CYCLICAL (SMILE REGIMEN)
     Route: 065
  4. METHOTREXATE [Suspect]
     Active Substance: METHOTREXATE
     Indication: Natural killer-cell lymphoblastic lymphoma
     Dosage: UNK, CYCLICAL (SMILE REGIMEN)
     Route: 065
  5. IFOSFAMIDE [Suspect]
     Active Substance: IFOSFAMIDE
     Indication: Natural killer-cell lymphoblastic lymphoma
     Dosage: UNK UNK, CYCLICAL (SMILE REGIMEN)
     Route: 065
  6. ASPARAGINASE [Suspect]
     Active Substance: ASPARAGINASE
     Indication: Natural killer-cell lymphoblastic lymphoma
     Dosage: UNK, CYCLICAL (SMILE REGIME)
     Route: 065
  7. AMIKACIN [Concomitant]
     Active Substance: AMIKACIN
     Indication: Atypical mycobacterial infection
     Dosage: UNK
  8. VANCOMYCIN [Concomitant]
     Active Substance: VANCOMYCIN
     Indication: Bacterial endophthalmitis
     Dosage: UNK (INJECTION)
  9. VANCOMYCIN [Concomitant]
     Active Substance: VANCOMYCIN
     Dosage: UNK (EYE DROPS)
     Route: 065
  10. VANCOMYCIN [Concomitant]
     Active Substance: VANCOMYCIN
     Dosage: 1 GRAM, EVERY 12 HRS, INFUSION (SYSTEMIC TREATMENT)
     Route: 042
  11. CEFTAZIDIME [Concomitant]
     Active Substance: CEFTAZIDIME
     Indication: Bacterial endophthalmitis
     Dosage: UNK (INJECTION)
  12. CEFTAZIDIME [Concomitant]
     Active Substance: CEFTAZIDIME
     Dosage: UNK (EYE DROPS)
     Route: 065
  13. CEFTAZIDIME [Concomitant]
     Active Substance: CEFTAZIDIME
     Dosage: 1 GRAM, EVERY 8 HOURS, INFUSION (SYSTEMIC TREATMENT)
     Route: 042

REACTIONS (3)
  - Septic shock [Fatal]
  - Drug ineffective [Unknown]
  - Off label use [Unknown]
